FAERS Safety Report 11965643 (Version 1)
Quarter: 2016Q1

REPORT INFORMATION
  Report Type: Spontaneous
  Country: US (occurrence: US)
  Receive Date: 20160127
  Receipt Date: 20160127
  Transmission Date: 20160526
  Serious: Yes (Other)
  Sender: FDA-Public Use
  Company Number: CHPA2016US001020

PATIENT
  Sex: Female

DRUGS (1)
  1. DICLOFENAC SODIUM. [Suspect]
     Active Substance: DICLOFENAC SODIUM
     Indication: PRODUCT USED FOR UNKNOWN INDICATION
     Dosage: UNK
     Route: 048
     Dates: start: 2001

REACTIONS (6)
  - Bone disorder [Unknown]
  - Renal disorder [Unknown]
  - Onychomadesis [Unknown]
  - Infection [Unknown]
  - Foot deformity [Unknown]
  - Tendon disorder [Unknown]
